FAERS Safety Report 23189842 (Version 2)
Quarter: 2023Q4

REPORT INFORMATION
  Report Type: Report from Study
  Country: CH (occurrence: CH)
  Receive Date: 20231116
  Receipt Date: 20231124
  Transmission Date: 20240110
  Serious: Yes (Life-Threatening, Hospitalization, Other)
  Sender: FDA-Public Use
  Company Number: None

PATIENT
  Age: 76 Year
  Sex: Male

DRUGS (8)
  1. OPDIVO [Suspect]
     Active Substance: NIVOLUMAB
     Indication: Non-small cell lung cancer stage IIIB
     Dosage: CYCLICAL
     Route: 041
     Dates: start: 20230627, end: 20230711
  2. AMIODARONE [Concomitant]
     Active Substance: AMIODARONE
     Indication: Ventricular tachycardia
     Route: 048
     Dates: start: 202210
  3. AMLODIPIN SPIRIG HC [Concomitant]
     Indication: Hypertension
     Route: 048
     Dates: start: 202210
  4. ASS CARDIO SPIRIG [Concomitant]
     Indication: Pulmonary embolism
     Route: 048
     Dates: start: 202210
  5. CASODEX [Concomitant]
     Active Substance: BICALUTAMIDE
     Indication: Prostate cancer
     Route: 048
     Dates: start: 202306
  6. NEBIVOLOL SPIRIG [Concomitant]
     Indication: Hypertension
     Route: 048
     Dates: start: 202212
  7. TORASEMID SPIRIG [Concomitant]
     Indication: Oedema
     Route: 048
     Dates: start: 202302
  8. GLYCOPYRRONIUM\INDACATEROL [Concomitant]
     Active Substance: GLYCOPYRRONIUM\INDACATEROL
     Indication: Chronic obstructive pulmonary disease
     Dosage: 110/50 MCG 1XDIE.
     Route: 055
     Dates: start: 202209

REACTIONS (8)
  - Immune-mediated lung disease [Recovering/Resolving]
  - Pneumonitis [Recovering/Resolving]
  - General physical health deterioration [Unknown]
  - Pulmonary toxicity [Unknown]
  - Metabolic alkalosis [Unknown]
  - Respiratory failure [Unknown]
  - Septic shock [Unknown]
  - Pneumonia [Unknown]

NARRATIVE: CASE EVENT DATE: 20230725
